FAERS Safety Report 8006113-X (Version None)
Quarter: 2011Q4

REPORT INFORMATION
  Report Type: 
  Country: None (occurrence: None)
  Receive Date: 20111226
  Receipt Date: 20111214
  Transmission Date: 20120403
  Serious: Yes (Life-Threatening, Other)
  Sender: FDA-Public Use
  Company Number: HR-PFIZER INC-2011169385

PATIENT
  Age: 59 Year
  Sex: Female

DRUGS (4)
  1. RAMIPRIL [Suspect]
     Dosage: 2.5 MG, 1X/DAY
     Route: 048
  2. BISOPROLOL FUMARATE [Concomitant]
     Dosage: UNK
  3. LEVOTHYROXINE SODIUM [Concomitant]
     Dosage: UNK
  4. ALPHAGAN [Suspect]
     Dosage: UNK, 2X/DAY
     Route: 047

REACTIONS (6)
  - DRY EYE [None]
  - EYELID OEDEMA [None]
  - SWELLING FACE [None]
  - ANGIOEDEMA [None]
  - PHARYNGEAL OEDEMA [None]
  - ERYTHEMA [None]
